FAERS Safety Report 4840877-9 (Version None)
Quarter: 2005Q4

REPORT INFORMATION
  Report Type: 
  Country: None (occurrence: None)
  Receive Date: 20051027
  Receipt Date: 20050509
  Transmission Date: 20060501
  Serious: Yes (Hospitalization, Other)
  Sender: FDA-Public Use
  Company Number: HQWYE629411MAY05

PATIENT
  Age: 60 Year
  Sex: Female
  Weight: 88.53 kg

DRUGS (3)
  1. PREMARIN [Suspect]
     Indication: HYSTERECTOMY
     Dosage: 0.9 MG 1X PER 1 DAY
     Dates: start: 19890101, end: 20030101
  2. LIPITOR [Concomitant]
  3. VASOTEC [Concomitant]

REACTIONS (1)
  - BREAST CANCER [None]
